FAERS Safety Report 4840819-6 (Version None)
Quarter: 2005Q4

REPORT INFORMATION
  Report Type: 
  Country: None (occurrence: None)
  Receive Date: 20051130
  Receipt Date: 20050401
  Transmission Date: 20060501
  Serious: Yes (Other)
  Sender: FDA-Public Use
  Company Number: US-BRISTOL-MYERS SQUIBB COMPANY-12918504

PATIENT
  Age: 81 Year
  Sex: Female

DRUGS (2)
  1. AVALIDE [Suspect]
  2. CLONIDINE [Suspect]

REACTIONS (1)
  - BLOOD PRESSURE INADEQUATELY CONTROLLED [None]
